FAERS Safety Report 7367117-3 (Version None)
Quarter: 2011Q1

REPORT INFORMATION
  Report Type: 
  Country: None (occurrence: None)
  Receive Date: 20110322
  Receipt Date: 20110317
  Transmission Date: 20110831
  Serious: Yes (Hospitalization)
  Sender: FDA-Public Use
  Company Number: US-B.I. PHARMACEUTICALS,INC./RIDGEFIELD-2011-BP-08426BP

PATIENT
  Sex: Male

DRUGS (2)
  1. CYCLOSPORINE [Concomitant]
  2. PRADAXA [Suspect]
     Dosage: 150 MG
     Route: 048

REACTIONS (2)
  - LABORATORY TEST ABNORMAL [None]
  - CONTUSION [None]
